FAERS Safety Report 14137590 (Version 1)
Quarter: 2017Q4

REPORT INFORMATION
  Report Type: Spontaneous
  Country: CH (occurrence: CH)
  Receive Date: 20171027
  Receipt Date: 20171027
  Transmission Date: 20180321
  Serious: Yes (Hospitalization)
  Sender: FDA-Public Use
  Company Number: CH-TEVA-817917ISR

PATIENT
  Age: 85 Year
  Sex: Female

DRUGS (23)
  1. CLAMOXYL [Suspect]
     Active Substance: AMOXICILLIN\CLAVULANIC ACID
     Indication: ENDOCARDITIS ENTEROCOCCAL
     Route: 041
     Dates: start: 20170612, end: 20170624
  2. AMLODIPINE [Concomitant]
     Active Substance: AMLODIPINE BESYLATE
  3. EUTHYROX [Concomitant]
     Active Substance: LEVOTHYROXINE SODIUM
  4. LANTUS [Concomitant]
     Active Substance: INSULIN GLARGINE
     Dates: start: 20170705
  5. MOVICOL [Concomitant]
     Active Substance: POLYETHYLENE GLYCOL 3350\POTASSIUM CHLORIDE\SODIUM BICARBONATE\SODIUM CHLORIDE
     Dates: start: 20170701
  6. REFOBACIN [Concomitant]
     Active Substance: GENTAMICIN SULFATE
     Dates: start: 20170610, end: 20170612
  7. CLEXANE [Concomitant]
     Active Substance: ENOXAPARIN SODIUM
     Dates: start: 20170611, end: 20170624
  8. CUBICIN [Concomitant]
     Active Substance: DAPTOMYCIN
     Dates: start: 20170626
  9. FLUCONAZOLE. [Concomitant]
     Active Substance: FLUCONAZOLE
     Route: 041
     Dates: start: 20170626, end: 20170704
  10. FLUCONAZOLE. [Concomitant]
     Active Substance: FLUCONAZOLE
     Route: 048
     Dates: start: 20170706, end: 20170710
  11. NEXIUM [Concomitant]
     Active Substance: ESOMEPRAZOLE MAGNESIUM
     Dates: start: 20170622
  12. CALCIMAGON D3 [Concomitant]
     Active Substance: CALCIUM\CHOLECALCIFEROL
  13. DAFALGAN [Concomitant]
     Active Substance: ACETAMINOPHEN
  14. TORASEMIDE [Concomitant]
     Active Substance: TORSEMIDE
     Dates: start: 20170622
  15. IMIPENEM AND CILASTATIN [Concomitant]
     Active Substance: CILASTATIN SODIUM\IMIPENEM
     Dates: start: 20170624, end: 20170626
  16. CALCIPARINE [Concomitant]
     Active Substance: HEPARIN CALCIUM
     Dates: start: 20170625
  17. LAXOBERON [Concomitant]
     Active Substance: SODIUM PICOSULFATE
     Dates: start: 20170612
  18. VI DE 3 [Concomitant]
     Dates: start: 20170609
  19. CO-AMOXI [Suspect]
     Active Substance: AMOXICILLIN\CLAVULANATE POTASSIUM
     Indication: ENDOCARDITIS ENTEROCOCCAL
     Route: 041
     Dates: start: 20170610, end: 20170612
  20. CEFTRIAXONE. [Suspect]
     Active Substance: CEFTRIAXONE
     Indication: ENDOCARDITIS ENTEROCOCCAL
     Route: 041
     Dates: start: 20170613, end: 20170626
  21. ISOPHANE INSULIN [Concomitant]
     Active Substance: INSULIN NOS
     Dates: end: 20170704
  22. NOVORAPID [Concomitant]
     Active Substance: INSULIN ASPART
  23. PURSANA [Concomitant]
     Active Substance: FIG FRUIT OIL\SORBITOL
     Dates: start: 20170612

REACTIONS (2)
  - Leukocyturia [Recovered/Resolved]
  - Acute kidney injury [Recovered/Resolved]

NARRATIVE: CASE EVENT DATE: 20170614
